FAERS Safety Report 17230202 (Version 1)
Quarter: 2020Q1

REPORT INFORMATION
  Report Type: Spontaneous
  Country: FI (occurrence: FI)
  Receive Date: 20200103
  Receipt Date: 20200103
  Transmission Date: 20200409
  Serious: Yes (Disabling)
  Sender: FDA-Public Use
  Company Number: FI-JNJFOC-20191240919

PATIENT
  Age: 32 Year
  Sex: Female

DRUGS (6)
  1. TOLVON [Concomitant]
     Active Substance: MIANSERIN
     Indication: DEPRESSION
     Route: 048
  2. BISOPROLOL [Concomitant]
     Active Substance: BISOPROLOL
     Indication: HEART RATE INCREASED
     Route: 048
  3. SERENASE (HALOPERIDOL DECANOATE) [Suspect]
     Active Substance: HALOPERIDOL DECANOATE
     Indication: PSYCHIATRIC DISORDER PROPHYLAXIS
     Route: 048
     Dates: start: 2017, end: 201909
  4. METFOREM [Concomitant]
     Active Substance: METFORMIN HYDROCHLORIDE
     Indication: DIABETES MELLITUS
     Route: 048
  5. TRAJENTA [Concomitant]
     Active Substance: LINAGLIPTIN
     Indication: DIABETES MELLITUS
     Route: 048
  6. OPTIPAR [Concomitant]
     Indication: DEPRESSION
     Route: 048

REACTIONS (3)
  - Visual impairment [Recovered/Resolved]
  - Vision blurred [Recovered/Resolved]
  - Sensory disturbance [Recovered/Resolved]

NARRATIVE: CASE EVENT DATE: 201908
